FAERS Safety Report 22211003 (Version 2)
Quarter: 2023Q2

REPORT INFORMATION
  Report Type: Spontaneous
  Country: US (occurrence: US)
  Receive Date: 20230414
  Receipt Date: 20230502
  Transmission Date: 20230721
  Serious: No
  Sender: FDA-Public Use
  Company Number: US-HETERO-HET2023US00878

PATIENT
  Sex: Male

DRUGS (1)
  1. LEVETIRACETAM [Suspect]
     Active Substance: LEVETIRACETAM
     Indication: Epilepsy
     Dosage: 750 MILLIGRAM, 2 TABLETS IN MORNING AND ONE TABLET IN THE EVENING
     Route: 048

REACTIONS (2)
  - Staring [Not Recovered/Not Resolved]
  - Treatment noncompliance [Unknown]
